FAERS Safety Report 7654259-8 (Version None)
Quarter: 2011Q3

REPORT INFORMATION
  Report Type: 
  Country: None (occurrence: None)
  Receive Date: 20110803
  Receipt Date: 20110725
  Transmission Date: 20111222
  Serious: Yes (Other)
  Sender: FDA-Public Use
  Company Number: US-ASTRAZENECA-2011SE44657

PATIENT
  Sex: Female

DRUGS (17)
  1. XOPENEX [Concomitant]
     Dosage: 0.63 MG/3ML 1 VIA NEBULIZER EVERY 4-6 HOURS AS NEEDED
  2. ASPIRIN [Concomitant]
  3. POTASSIUM CHLORIDE [Concomitant]
     Dosage: 20 MEQ/15 ML, ONE TABLESPOON IN 2 TO 6 OUNCES OF WATER OR JUICE DAILY
     Route: 048
  4. SYNTHROID [Concomitant]
     Route: 048
  5. LORTAB [Concomitant]
     Indication: PAIN
     Dosage: 5 MG/600 MG BID/PRN
     Route: 048
  6. SEROQUEL [Suspect]
     Route: 048
  7. TYLENOL-500 [Concomitant]
  8. CARVEDIOL [Concomitant]
     Route: 048
  9. COUMADIN [Concomitant]
     Route: 048
  10. SILVER SULFADIAZINE [Concomitant]
     Dosage: SUFFICIENT AMOUNT TO THE AFFECTED AREA TWO TIMES A DAY
  11. LISINOPRIL [Suspect]
     Route: 048
  12. DIGOXIN [Concomitant]
     Route: 048
  13. LASIX [Concomitant]
     Route: 048
  14. COUMADIN [Concomitant]
     Route: 048
  15. INSULIN [Concomitant]
     Dosage: 1 CC SYRINGE AS INDICATED
  16. PULMICORT [Suspect]
     Route: 055
  17. LYRICA [Concomitant]
     Route: 048

REACTIONS (10)
  - PAIN IN EXTREMITY [None]
  - CARDIAC FAILURE CONGESTIVE [None]
  - CHRONIC OBSTRUCTIVE PULMONARY DISEASE [None]
  - DIABETIC NEUROPATHY [None]
  - HYPOTHYROIDISM [None]
  - MENTAL STATUS CHANGES [None]
  - DIABETES MELLITUS INADEQUATE CONTROL [None]
  - THERMAL BURN [None]
  - GAIT DISTURBANCE [None]
  - DEPRESSION [None]
